FAERS Safety Report 9246553 (Version 1)
Quarter: 2013Q2

REPORT INFORMATION
  Report Type: Report from Study
  Country: US (occurrence: US)
  Receive Date: 20130422
  Receipt Date: 20130422
  Transmission Date: 20140414
  Serious: No
  Sender: FDA-Public Use
  Company Number: US-ABBOTT-12P-163-0936607-00

PATIENT
  Age: 8 Year
  Sex: Female
  Weight: 34.05 kg

DRUGS (3)
  1. LUPRON DEPOT-PED 7.5 MG [Suspect]
     Indication: PRECOCIOUS PUBERTY
     Dates: start: 201105
  2. LUPRON DEPOT-PED 11.25 MG [Suspect]
     Indication: PRECOCIOUS PUBERTY
     Dates: start: 201108
  3. LUPRON DEPOT-PED 15 MG [Suspect]
     Indication: PRECOCIOUS PUBERTY
     Dates: start: 201202

REACTIONS (11)
  - Multiple allergies [Not Recovered/Not Resolved]
  - Precocious puberty [Not Recovered/Not Resolved]
  - Hair growth abnormal [Not Recovered/Not Resolved]
  - Sinusitis [Recovering/Resolving]
  - Ear infection [Recovering/Resolving]
  - Conjunctivitis infective [Recovering/Resolving]
  - Vaginal discharge [Not Recovered/Not Resolved]
  - Pyrexia [Recovered/Resolved]
  - Cough [Recovering/Resolving]
  - Pertussis [Recovered/Resolved]
  - Nasal inflammation [Recovering/Resolving]
